FAERS Safety Report 21880941 (Version 1)
Quarter: 2023Q1

REPORT INFORMATION
  Report Type: Spontaneous
  Country: None (occurrence: PL)
  Receive Date: 20230118
  Receipt Date: 20230118
  Transmission Date: 20230417
  Serious: Yes (Life-Threatening, Other)
  Sender: FDA-Public Use
  Company Number: PL-B.Braun Medical Inc.-2136861

PATIENT
  Age: 36 Year
  Sex: Female
  Weight: 100 kg

DRUGS (7)
  1. ACETAMINOPHEN [Suspect]
     Active Substance: ACETAMINOPHEN
  2. PROBIOTICS NOS [Suspect]
     Active Substance: PROBIOTICS NOS
  3. KETOPROFEN [Suspect]
     Active Substance: KETOPROFEN
  4. IBUPROFEN [Suspect]
     Active Substance: IBUPROFEN
  5. TIZANIDINE [Suspect]
     Active Substance: TIZANIDINE
  6. MIANSERIN [Suspect]
     Active Substance: MIANSERIN
  7. FUROSEMIDE [Suspect]
     Active Substance: FUROSEMIDE

REACTIONS (7)
  - Blood creatine increased [Unknown]
  - Suicide attempt [Unknown]
  - Somnolence [Unknown]
  - Confusional state [Unknown]
  - Toxicity to various agents [Unknown]
  - Renal impairment [Unknown]
  - Drug abuse [Unknown]
